FAERS Safety Report 7017989-7 (Version None)
Quarter: 2010Q3

REPORT INFORMATION
  Report Type: 
  Country: None (occurrence: None)
  Receive Date: 20100927
  Receipt Date: 20100927
  Transmission Date: 20110219
  Serious: Yes (Disabling, Other)
  Sender: FDA-Public Use
  Company Number: None

PATIENT
  Age: 54 Year
  Sex: Female
  Weight: 72.5755 kg

DRUGS (1)
  1. CIPRO [Suspect]
     Indication: KIDNEY INFECTION
     Dates: start: 20090510, end: 20090514

REACTIONS (12)
  - ANXIETY [None]
  - ARTHRALGIA [None]
  - ASTHMA [None]
  - BALANCE DISORDER [None]
  - BLOOD POTASSIUM DECREASED [None]
  - CHRONIC OBSTRUCTIVE PULMONARY DISEASE [None]
  - CONDITION AGGRAVATED [None]
  - GAIT DISTURBANCE [None]
  - GROIN PAIN [None]
  - INITIAL INSOMNIA [None]
  - PAIN IN EXTREMITY [None]
  - VISUAL IMPAIRMENT [None]
